FAERS Safety Report 15100698 (Version 3)
Quarter: 2018Q3

REPORT INFORMATION
  Report Type: Report from Study
  Country: AU (occurrence: AU)
  Receive Date: 20180703
  Receipt Date: 20180718
  Transmission Date: 20181010
  Serious: Yes (Death, Hospitalization)
  Sender: FDA-Public Use
  Company Number: AU-ROCHE-2148497

PATIENT
  Age: 82 Year
  Sex: Male

DRUGS (1)
  1. OMALIZUMAB. [Suspect]
     Active Substance: OMALIZUMAB
     Indication: PEMPHIGOID
     Route: 058

REACTIONS (4)
  - Rib fracture [Fatal]
  - Product use in unapproved indication [Unknown]
  - Pneumonia [Fatal]
  - Fall [Fatal]

NARRATIVE: CASE EVENT DATE: 20180625
